FAERS Safety Report 26064992 (Version 1)
Quarter: 2025Q4

REPORT INFORMATION
  Report Type: Spontaneous
  Country: CN (occurrence: CN)
  Receive Date: 20251119
  Receipt Date: 20251119
  Transmission Date: 20260118
  Serious: Yes (Life-Threatening, Other)
  Sender: BAYER HEALTHCARE PHARMACEUTICALS INC.
  Company Number: CN-BAYER-2025A152423

PATIENT
  Age: 72 Year
  Sex: Female
  Weight: 45 kg

DRUGS (3)
  1. ULTRAVIST [Suspect]
     Active Substance: IOPROMIDE
     Indication: Computerised tomogram abdomen
     Dosage: 80 ML, ONCE, 3ML/S
     Route: 042
     Dates: start: 20251022, end: 20251022
  2. ULTRAVIST [Suspect]
     Active Substance: IOPROMIDE
     Indication: Cough
  3. ULTRAVIST [Suspect]
     Active Substance: IOPROMIDE
     Indication: Pulmonary imaging procedure abnormal

REACTIONS (8)
  - Pyrexia [Recovered/Resolved]
  - Sluggishness [Recovered/Resolved]
  - Pruritus [Recovered/Resolved]
  - Dizziness [Recovered/Resolved]
  - Muscular weakness [Recovered/Resolved]
  - Vomiting [Recovered/Resolved]
  - Blood pressure decreased [Recovering/Resolving]
  - Hypoxia [Recovered/Resolved]

NARRATIVE: CASE EVENT DATE: 20251022
